FAERS Safety Report 17179559 (Version 1)
Quarter: 2019Q4

REPORT INFORMATION
  Report Type: Spontaneous
  Country: GB (occurrence: GB)
  Receive Date: 20191219
  Receipt Date: 20191219
  Transmission Date: 20200122
  Serious: Yes (Other)
  Sender: FDA-Public Use
  Company Number: GB-TEVA-2019-GB-1153266

PATIENT
  Age: 85 Year
  Sex: Female

DRUGS (1)
  1. PREGABALIN. [Suspect]
     Active Substance: PREGABALIN
     Indication: PAIN
     Dosage: 25 MILLIGRAM DAILY; MORNING.
     Route: 048

REACTIONS (2)
  - Hallucinations, mixed [Recovered/Resolved]
  - Confusional state [Recovered/Resolved]
